FAERS Safety Report 5156097-7 (Version None)
Quarter: 2006Q4

REPORT INFORMATION
  Report Type: 
  Country: None (occurrence: None)
  Receive Date: 20061122
  Receipt Date: 20061110
  Transmission Date: 20070319
  Serious: Yes (Other)
  Sender: FDA-Public Use
  Company Number: PHBS2006ES17894

PATIENT
  Age: 38 Year
  Sex: Female

DRUGS (9)
  1. CARBAMAZEPINE [Suspect]
     Indication: EPILEPSY
     Dosage: 1200 MG/DAY
     Route: 065
  2. LEVETIRACETAM [Concomitant]
     Indication: EPILEPSY
     Dosage: 1500 MG/DAY
     Route: 065
  3. LAMOTRIGINE [Concomitant]
     Indication: EPILEPSY
     Dosage: 400 MG/DAY
     Route: 065
  4. TENOFOVIR [Concomitant]
     Dosage: 300 MG/24H
     Route: 065
  5. LAMIVUDINE [Concomitant]
     Dosage: 300 MG/24H
     Route: 065
  6. EFAVIRENZ [Concomitant]
     Dosage: 600 MG/DAY
     Route: 065
  7. ESTAVUDINA [Concomitant]
     Dosage: 30 MG, Q12H
     Route: 065
  8. ATAZANAVIR [Concomitant]
     Dosage: 300 MG/24H
     Route: 065
  9. RITONAVIR [Concomitant]
     Dosage: 100 MG/24H
     Route: 065

REACTIONS (3)
  - ANTICONVULSANT DRUG LEVEL INCREASED [None]
  - DRUG TOXICITY [None]
  - VERTIGO [None]
